FAERS Safety Report 6226734-4 (Version None)
Quarter: 2009Q2

REPORT INFORMATION
  Report Type: 
  Country: None (occurrence: None)
  Receive Date: 20090612
  Receipt Date: 20090609
  Transmission Date: 20091009
  Serious: Yes (Other)
  Sender: FDA-Public Use
  Company Number: DE-ROCHE-637183

PATIENT
  Sex: Female
  Weight: 75 kg

DRUGS (2)
  1. XENICAL [Suspect]
     Indication: DRUG USE FOR UNKNOWN INDICATION
     Dosage: BATCH M1516
     Route: 065
  2. XENICAL [Suspect]
     Route: 065

REACTIONS (2)
  - ABDOMINAL PAIN [None]
  - DIARRHOEA [None]
